FAERS Safety Report 4920520-0 (Version None)
Quarter: 2006Q1

REPORT INFORMATION
  Report Type: 
  Country: None (occurrence: None)
  Receive Date: 20060223
  Receipt Date: 20060213
  Transmission Date: 20060701
  Serious: Yes (Death)
  Sender: FDA-Public Use
  Company Number: JP-SANOFI-SYNTHELABO-A01200601258

PATIENT
  Sex: Male

DRUGS (2)
  1. OXALIPLATIN [Suspect]
     Indication: LARGE INTESTINE CARCINOMA
     Dosage: 130MG/BODY IN INFUSION ON DAY 1
     Route: 042
     Dates: start: 20060123, end: 20060123
  2. FLUOROURACIL [Suspect]
     Indication: LARGE INTESTINE CARCINOMA
     Dosage: 600MG/BODY IN BOLUS THEN 900MG/BODY AS CONTINUOUS INFUSION ON DAYS 1 AND 2
     Route: 042
     Dates: start: 20060123, end: 20060124

REACTIONS (1)
  - BONE MARROW FAILURE [None]
